FAERS Safety Report 8768528 (Version 3)
Quarter: 2013Q3

REPORT INFORMATION
  Report Type: Report from Study
  Country: BR (occurrence: BR)
  Receive Date: 20120906
  Receipt Date: 20130827
  Transmission Date: 20140515
  Serious: Yes (Hospitalization)
  Sender: FDA-Public Use
  Company Number: BR-ROCHE-1109784

PATIENT
  Age: 68 Year
  Sex: Female

DRUGS (5)
  1. MABTHERA [Suspect]
     Indication: RHEUMATOID ARTHRITIS
     Route: 042
     Dates: start: 20110313, end: 2011
  2. ANCORON [Concomitant]
     Route: 065
  3. AMLODIPINE [Concomitant]
     Route: 065
  4. HEPARIN [Concomitant]
  5. OMEPRAZOLE [Concomitant]

REACTIONS (6)
  - Cerebrovascular accident [Recovering/Resolving]
  - Nosocomial infection [Recovered/Resolved]
  - Urinary tract infection [Not Recovered/Not Resolved]
  - Thrombosis [Recovered/Resolved]
  - Pneumonia [Not Recovered/Not Resolved]
  - Confusional state [Unknown]
